FAERS Safety Report 9964354 (Version 4)
Quarter: 2014Q2

REPORT INFORMATION
  Report Type: Spontaneous
  Country: AR (occurrence: AR)
  Receive Date: 20140305
  Receipt Date: 20140527
  Transmission Date: 20141212
  Serious: Yes (Hospitalization)
  Sender: FDA-Public Use
  Company Number: AR-PFIZER INC-2014062872

PATIENT
  Age: 62 Year
  Sex: Male

DRUGS (1)
  1. SUTENT [Suspect]
     Indication: METASTATIC RENAL CELL CARCINOMA
     Dosage: 50 MG, CYCLIC ONCE DAILY 4 WEEKS ON AND 2 WEEKS OFF
     Dates: start: 20140127, end: 2014

REACTIONS (8)
  - Urinary tract infection [Recovered/Resolved]
  - Hypothermia [Not Recovered/Not Resolved]
  - Yellow skin [Recovered/Resolved]
  - Discomfort [Recovered/Resolved]
  - Visual impairment [Recovered/Resolved]
  - Walking disability [Recovered/Resolved]
  - Somnolence [Recovered/Resolved]
  - Chromaturia [Recovered/Resolved]
